FAERS Safety Report 9711034 (Version 1)
Quarter: 2013Q4

REPORT INFORMATION
  Report Type: Spontaneous
  Country: US (occurrence: US)
  Receive Date: 20131126
  Receipt Date: 20131126
  Transmission Date: 20140711
  Serious: No
  Sender: FDA-Public Use
  Company Number: US-BRISTOL-MYERS SQUIBB COMPANY-19038561

PATIENT
  Age: 57 Year
  Sex: Male
  Weight: 93.42 kg

DRUGS (3)
  1. BYDUREON [Suspect]
     Indication: TYPE 2 DIABETES MELLITUS
     Dosage: NO OF DOSES-2
     Dates: start: 20130609
  2. METFORMIN [Concomitant]
  3. BENADRYL [Concomitant]
     Dosage: TAKES 1/2 BENADRYL

REACTIONS (3)
  - Injection site nodule [Unknown]
  - Injection site pruritus [Unknown]
  - Weight decreased [Recovered/Resolved]
